FAERS Safety Report 12347840 (Version 1)
Quarter: 2016Q2

REPORT INFORMATION
  Report Type: Spontaneous
  Country: CH (occurrence: CH)
  Receive Date: 20160509
  Receipt Date: 20160509
  Transmission Date: 20160815
  Serious: Yes (Other)
  Sender: FDA-Public Use
  Company Number: CH-BAXTER-2016BAX019921

PATIENT
  Age: 59 Year
  Sex: Female
  Weight: 85 kg

DRUGS (18)
  1. MIMPARA [Concomitant]
     Active Substance: CINACALCET HYDROCHLORIDE
     Indication: HYPERPARATHYROIDISM SECONDARY
     Dosage: 0-0-1
     Route: 065
  2. EXTRANEAL [Suspect]
     Active Substance: CALCIUM CHLORIDE\ICODEXTRIN\MAGNESIUM CHLORIDE\SODIUM CHLORIDE\SODIUM LACTATE
     Indication: PERITONEAL DIALYSIS
     Route: 033
     Dates: end: 20160216
  3. CANDESARTAN [Concomitant]
     Active Substance: CANDESARTAN
     Indication: HYPERTENSION
     Route: 065
     Dates: start: 2014
  4. ASPIRIN CARDIO [Concomitant]
     Active Substance: ASPIRIN
     Indication: CARDIOVASCULAR EVENT PROPHYLAXIS
     Dosage: 1-0-0
     Route: 065
     Dates: start: 2014
  5. METOLAZON [Concomitant]
     Active Substance: METOLAZONE
     Indication: HYPERVOLAEMIA
     Dosage: 1-0-0
     Route: 065
     Dates: start: 2014
  6. ESOMEP [Concomitant]
     Active Substance: ESOMEPRAZOLE
     Indication: DYSPEPSIA
     Dosage: 0-0-1
     Route: 065
     Dates: start: 2014
  7. PHYSIONEAL 40 CLEAR-FLEX 1.36% [Suspect]
     Active Substance: ANHYDROUS DEXTROSE\CALCIUM CHLORIDE\MAGNESIUM CHLORIDE\SODIUM BICARBONATE\SODIUM CHLORIDE\SODIUM LACTATE
     Indication: PERITONEAL DIALYSIS
     Route: 033
     Dates: end: 20160216
  8. RENAGEL [Concomitant]
     Active Substance: SEVELAMER HYDROCHLORIDE
     Indication: HYPERPARATHYROIDISM SECONDARY
     Dosage: 2-2-2
     Route: 065
  9. VIDE3 DROPS STREULI [Concomitant]
     Indication: VITAMIN D DEFICIENCY
     Dosage: 1000 U/DAY
     Route: 065
     Dates: start: 2014
  10. METOLAZON [Concomitant]
     Active Substance: METOLAZONE
     Indication: OLIGURIA
  11. BELOC ZOK [Concomitant]
     Active Substance: METOPROLOL SUCCINATE
     Indication: HYPERTENSION
     Dosage: 1-0-0
     Route: 065
     Dates: start: 2014
  12. TORASEMID [Concomitant]
     Active Substance: TORSEMIDE
     Indication: HYPERVOLAEMIA
     Dosage: 1-0.5-0
     Route: 065
     Dates: start: 2014
  13. LEVEMIR FLEXPEN INSULIN [Concomitant]
     Indication: DIABETES MELLITUS
     Dosage: 8 UNITS
     Route: 065
     Dates: start: 2013
  14. MAGNESIOCARD [Concomitant]
     Active Substance: MAGNESIUM ASPARTATE HYDROCHLORIDE
     Indication: HYPERMAGNESAEMIA
     Dosage: 1-0-0
     Route: 065
     Dates: start: 2015
  15. TORASEMID [Concomitant]
     Active Substance: TORSEMIDE
     Indication: OLIGURIA
  16. NOVORAPID FLEXPEN INSULIN [Concomitant]
     Indication: DIABETES MELLITUS
     Dosage: 6 TO 6 UNITS PER MEAL
     Route: 065
     Dates: start: 2013
  17. MIRCERA [Concomitant]
     Active Substance: METHOXY POLYETHYLENE GLYCOL-EPOETIN BETA
     Indication: NEPHROGENIC ANAEMIA
     Dosage: UG DEPENDING ON HB
     Route: 065
     Dates: start: 2014
  18. DIALVIT [Concomitant]
     Indication: VITAMIN SUPPLEMENTATION
     Dosage: 1-0-0
     Route: 065
     Dates: start: 201401

REACTIONS (6)
  - Synovial cyst [Unknown]
  - Peritoneal dialysis complication [Unknown]
  - Bacteraemia [Unknown]
  - Arteriovenous fistula thrombosis [Unknown]
  - Peritonitis bacterial [Recovered/Resolved]
  - Device related infection [Unknown]

NARRATIVE: CASE EVENT DATE: 20160203
